FAERS Safety Report 8582092-1 (Version None)
Quarter: 2012Q3

REPORT INFORMATION
  Report Type: 
  Country: None (occurrence: None)
  Receive Date: 20120809
  Receipt Date: 20120806
  Transmission Date: 20120928
  Serious: Yes (Other)
  Sender: FDA-Public Use
  Company Number: US-PFIZER INC-2012138755

PATIENT
  Age: 50 Year
  Sex: Female
  Weight: 124 kg

DRUGS (6)
  1. LOPRESSOR [Suspect]
     Indication: BLOOD PRESSURE ABNORMAL
     Dosage: UNK
     Route: 048
  2. ZOCOR [Concomitant]
     Indication: BLOOD CHOLESTEROL ABNORMAL
     Dosage: 40 MG, DAILY
     Route: 048
  3. ANTIVERT [Concomitant]
     Indication: VERTIGO
  4. CHANTIX [Suspect]
     Indication: SMOKING CESSATION THERAPY
     Dosage: UNK
     Route: 048
     Dates: start: 20080101, end: 20090101
  5. LOPRESSOR [Suspect]
     Dosage: SPLITTING THE 50MG TABLETS INTO HALF SO AS TO TAKE 25MG IN THE MORNING AND 25MG AT NIGHT
     Route: 048
  6. ANTIVERT [Concomitant]
     Indication: DIZZINESS
     Dosage: 25 MG, AS NEEDED

REACTIONS (2)
  - CORONARY ARTERY OCCLUSION [None]
  - MYOCARDIAL INFARCTION [None]
